FAERS Safety Report 14830326 (Version 1)
Quarter: 2018Q2

REPORT INFORMATION
  Report Type: Spontaneous
  Country: US (occurrence: US)
  Receive Date: 20180430
  Receipt Date: 20180430
  Transmission Date: 20180711
  Serious: No
  Sender: FDA-Public Use
  Company Number: US-SA-2018SA025902

PATIENT
  Age: 68 Year
  Sex: Female

DRUGS (2)
  1. PRALUENT [Suspect]
     Active Substance: ALIROCUMAB
     Indication: HYPERLIPIDAEMIA
     Dosage: FREQUENCY: EVERY FOUR WEEKS
     Route: 058
     Dates: start: 20171219
  2. ALIROCUMAB PREFILLED PEN [Suspect]
     Active Substance: ALIROCUMAB
     Indication: HYPERLIPIDAEMIA
     Dosage: EVERY FOUR WEEKS
     Dates: start: 20171219

REACTIONS (4)
  - Oral pain [Unknown]
  - Rash [Unknown]
  - Lip pain [Unknown]
  - Product use issue [Unknown]

NARRATIVE: CASE EVENT DATE: 20180106
